FAERS Safety Report 24348322 (Version 1)
Quarter: 2024Q3

REPORT INFORMATION
  Report Type: Spontaneous
  Country: CN (occurrence: CN)
  Receive Date: 20240923
  Receipt Date: 20240923
  Transmission Date: 20241016
  Serious: Yes (Hospitalization)
  Sender: ABBVIE
  Company Number: CN-PFIZER INC-PV202400122362

PATIENT
  Age: 19 Month
  Sex: Male
  Weight: 12 kg

DRUGS (3)
  1. AVIBACTAM SODIUM\CEFTAZIDIME [Suspect]
     Active Substance: AVIBACTAM SODIUM\CEFTAZIDIME
     Indication: Kawasaki^s disease
     Dosage: TIME INTERVAL: 0.33333333 DAYS: 0.75 G, 3X/DAY
     Route: 042
     Dates: start: 20240814, end: 20240825
  2. MEROPENEM [Suspect]
     Active Substance: MEROPENEM
     Indication: Kawasaki^s disease
     Dosage: TIME INTERVAL: 0.33333333 DAYS: 250 MG, 3X/DAY
     Route: 042
     Dates: start: 20240805, end: 20240814
  3. SULFAMETHOXAZOLE [Suspect]
     Active Substance: SULFAMETHOXAZOLE
     Indication: Kawasaki^s disease
     Dosage: 360 MG, 2X/DAY VIA NASAL FEEDING
     Route: 065
     Dates: start: 20240815, end: 20240819

REACTIONS (2)
  - Infantile diarrhoea [Recovering/Resolving]
  - Off label use [Unknown]

NARRATIVE: CASE EVENT DATE: 20240814
